FAERS Safety Report 8619595-7 (Version None)
Quarter: 2012Q3

REPORT INFORMATION
  Report Type: 
  Country: None (occurrence: None)
  Receive Date: 20120824
  Receipt Date: 20120821
  Transmission Date: 20120928
  Serious: Yes (Hospitalization)
  Sender: FDA-Public Use
  Company Number: PHHY2012MX043550

PATIENT
  Sex: Female

DRUGS (2)
  1. INSULIN MALOC [Concomitant]
     Dosage: 50 IU IN THE MORNING AND 20 IU IN THE NIGHT
  2. RASILEZ [Suspect]
     Indication: HYPERTENSION
     Dosage: 1 DF
     Dates: end: 20120301

REACTIONS (3)
  - BLOOD GLUCOSE INCREASED [None]
  - DISCOMFORT [None]
  - PERIPHERAL NERVE LESION [None]
